FAERS Safety Report 5796091-6 (Version None)
Quarter: 2008Q3

REPORT INFORMATION
  Report Type: 
  Country: None (occurrence: None)
  Receive Date: 20080701
  Receipt Date: 20080623
  Transmission Date: 20090109
  Serious: Yes (Hospitalization)
  Sender: FDA-Public Use
  Company Number: TH-JNJFOC-20080502183

PATIENT
  Sex: Female
  Weight: 66.6 kg

DRUGS (2)
  1. PALIPERIDONE ER [Suspect]
     Route: 048
  2. PALIPERIDONE ER [Suspect]
     Indication: SCHIZOPHRENIA
     Route: 048

REACTIONS (1)
  - HALLUCINATION, AUDITORY [None]
